FAERS Safety Report 10591178 (Version 1)
Quarter: 2014Q4

REPORT INFORMATION
  Report Type: Spontaneous
  Country: GB (occurrence: GB)
  Receive Date: 20141118
  Receipt Date: 20141118
  Transmission Date: 20150529
  Serious: Yes (Other)
  Sender: FDA-Public Use
  Company Number: GB-ROCHE-1490595

PATIENT
  Sex: Female

DRUGS (3)
  1. HERCEPTIN [Suspect]
     Active Substance: TRASTUZUMAB
     Indication: BREAST CANCER
     Route: 065
     Dates: end: 201305
  2. TRASTUZUMAB EMTANSINE [Suspect]
     Active Substance: ADO-TRASTUZUMAB EMTANSINE
     Indication: PRODUCT USED FOR UNKNOWN INDICATION
     Route: 065
     Dates: start: 201403
  3. CAPECITABINE. [Suspect]
     Active Substance: CAPECITABINE
     Indication: PRODUCT USED FOR UNKNOWN INDICATION
     Route: 065
     Dates: start: 201305, end: 201307

REACTIONS (10)
  - Infection [Unknown]
  - Paronychia [Unknown]
  - Neoplasm [Unknown]
  - Lung adenocarcinoma [Unknown]
  - Pulmonary mass [Unknown]
  - Hepatic function abnormal [Unknown]
  - Nodule [Unknown]
  - Lung neoplasm [Unknown]
  - Peripheral sensory neuropathy [Unknown]
  - Unevaluable event [Unknown]
